FAERS Safety Report 23431848 (Version 4)
Quarter: 2024Q3

REPORT INFORMATION
  Report Type: Report from Study
  Country: CA (occurrence: CA)
  Receive Date: 20240123
  Receipt Date: 20240830
  Transmission Date: 20241017
  Serious: Yes (Other)
  Sender: TAKEDA
  Company Number: CA-TAKEDA-2020TUS049168

PATIENT
  Sex: Male

DRUGS (3)
  1. VEDOLIZUMAB [Suspect]
     Active Substance: VEDOLIZUMAB
     Indication: Crohn^s disease
     Dosage: 300 MILLIGRAM
     Route: 042
     Dates: start: 20180730
  2. VEDOLIZUMAB [Suspect]
     Active Substance: VEDOLIZUMAB
     Dosage: 300 MILLIGRAM
     Route: 042
  3. IRON [Concomitant]
     Active Substance: IRON
     Dosage: UNK

REACTIONS (13)
  - Haematochezia [Unknown]
  - Anal haemorrhage [Recovering/Resolving]
  - Diarrhoea [Recovering/Resolving]
  - Haemorrhoids [Unknown]
  - Constipation [Unknown]
  - Anal fissure [Unknown]
  - Blood iron decreased [Unknown]
  - Sleep disorder [Unknown]
  - Pain [Unknown]
  - Discomfort [Unknown]
  - Chest pain [Recovered/Resolved]
  - Abdominal distension [Unknown]
  - Arthralgia [Unknown]
